FAERS Safety Report 9789394 (Version 1)
Quarter: 2013Q4

REPORT INFORMATION
  Report Type: Report from Study
  Country: US (occurrence: US)
  Receive Date: 20131231
  Receipt Date: 20131231
  Transmission Date: 20140711
  Serious: Yes (Other)
  Sender: FDA-Public Use
  Company Number: US-ABBVIE-13P-163-1181723-00

PATIENT
  Sex: Female

DRUGS (3)
  1. HUMIRA [Suspect]
     Indication: CROHN^S DISEASE
     Dosage: ONE DOSE
     Route: 058
     Dates: start: 20131017, end: 20131017
  2. HUMIRA [Suspect]
     Dosage: ONE DOSE
     Dates: start: 20131031, end: 20131031
  3. HUMIRA [Suspect]
     Dosage: ONE DOSE
     Dates: start: 20131114, end: 20131114

REACTIONS (3)
  - Female genital tract fistula [Not Recovered/Not Resolved]
  - Intestinal dilatation [Recovered/Resolved]
  - Intestinal resection [Unknown]
